FAERS Safety Report 5057735-X (Version None)
Quarter: 2006Q3

REPORT INFORMATION
  Report Type: 
  Country: None (occurrence: None)
  Receive Date: 20060721
  Receipt Date: 20060131
  Transmission Date: 20061208
  Serious: No
  Sender: FDA-Public Use
  Company Number: US-GLAXOSMITHKLINE-A0591717A

PATIENT
  Sex: Female

DRUGS (7)
  1. AVANDIA [Suspect]
     Dosage: 4MG PER DAY
     Route: 048
  2. GLUCOPHAGE [Concomitant]
  3. VERAPAMIL [Concomitant]
  4. DITROPAN XL [Concomitant]
  5. ALLEGRA [Concomitant]
  6. MIRAPEX [Concomitant]
  7. ZOLOFT [Concomitant]

REACTIONS (4)
  - BURNING SENSATION [None]
  - LOCAL SWELLING [None]
  - SKIN DISCOLOURATION [None]
  - SWELLING [None]
